FAERS Safety Report 6498285-3 (Version None)
Quarter: 2009Q4

REPORT INFORMATION
  Report Type: 
  Country: None (occurrence: None)
  Receive Date: 20091125
  Receipt Date: 20090622
  Transmission Date: 20100525
  Serious: Yes (Hospitalization)
  Sender: FDA-Public Use
  Company Number: 2009BH010390

PATIENT
  Sex: Male

DRUGS (1)
  1. DIANEAL [Suspect]
     Indication: PERITONEAL DIALYSIS
     Dosage: IP
     Route: 033
     Dates: start: 20050501, end: 20090324

REACTIONS (3)
  - BLOOD ALBUMIN DECREASED [None]
  - PERITONEAL DIALYSIS COMPLICATION [None]
  - PERITONITIS BACTERIAL [None]
